FAERS Safety Report 8349722-0 (Version None)
Quarter: 2012Q2

REPORT INFORMATION
  Report Type: 
  Country: None (occurrence: None)
  Receive Date: 20120510
  Receipt Date: 20120502
  Transmission Date: 20120825
  Serious: Yes (Other)
  Sender: FDA-Public Use
  Company Number: US-SHIRE-ALL1-2012-02220

PATIENT
  Sex: Female
  Weight: 117.91 kg

DRUGS (10)
  1. CLONAZEPAM [Concomitant]
     Dosage: 0.5 MG, 3X/DAY:TID
     Route: 048
     Dates: start: 20120401
  2. SPIRONOLACTONE [Concomitant]
     Indication: HAIR GROWTH ABNORMAL
     Dosage: 2 TABLETS UNK DOSAGE, 2X/DAY:BID
     Route: 048
  3. SEROQUEL [Concomitant]
     Indication: DEPRESSION
     Dosage: 4 TABLETS UNK DOSAGE, 1X/DAY:QD
     Route: 048
     Dates: start: 20040101
  4. LAMOTRIGINE [Concomitant]
     Indication: DEPRESSION
     Dosage: 125 MG, OTHER (1 TABLET IN AM)
     Route: 048
     Dates: start: 20040101
  5. VYVANSE [Suspect]
     Dosage: UNK, UNKNOWN
     Route: 048
  6. LAMOTRIGINE [Concomitant]
     Dosage: 125 MG, OTHER (4 TABLETS IN PM)
     Route: 048
     Dates: start: 20040101
  7. CLONAZEPAM [Concomitant]
     Indication: ANXIETY
     Dosage: 0.5 MG, 1X/DAY:QD
     Route: 048
     Dates: start: 20020101, end: 20120401
  8. VYVANSE [Suspect]
     Indication: BIPOLAR II DISORDER
     Dosage: 20 MG, 1X/DAY:QD
     Route: 048
     Dates: start: 20100101
  9. PROZAC [Concomitant]
     Indication: BIPOLAR II DISORDER
     Dosage: 500 MG, (5) 100MG, TABLETS 1X/DAY:QD
     Route: 048
     Dates: start: 19920101
  10. VYVANSE [Suspect]
     Indication: ATTENTION DEFICIT/HYPERACTIVITY DISORDER
     Dosage: 70 MG, 1X/DAY:QD
     Route: 048
     Dates: start: 20100801

REACTIONS (6)
  - DEPRESSION [None]
  - NYSTAGMUS [None]
  - ACCOMMODATION DISORDER [None]
  - STRABISMUS [None]
  - MENTAL DISORDER [None]
  - ANXIETY [None]
